FAERS Safety Report 20738734 (Version 2)
Quarter: 2024Q1

REPORT INFORMATION
  Report Type: Spontaneous
  Country: US (occurrence: US)
  Receive Date: 20220422
  Receipt Date: 20240102
  Transmission Date: 20240409
  Serious: Yes (Death, Other)
  Sender: FDA-Public Use
  Company Number: US-AMGEN-USASP2022068280

PATIENT

DRUGS (2)
  1. CARFILZOMIB [Suspect]
     Active Substance: CARFILZOMIB
     Indication: Transplant rejection
     Dosage: 20 MILLIGRAM/SQ. METER (1,2, 8, 9, 15 AND 16)
     Route: 065
     Dates: start: 2018
  2. CARFILZOMIB [Suspect]
     Active Substance: CARFILZOMIB
     Indication: Off label use

REACTIONS (12)
  - Death [Fatal]
  - Coronary artery disease [Fatal]
  - Renal impairment [Unknown]
  - Sepsis [Unknown]
  - Transplant dysfunction [Fatal]
  - Acute kidney injury [Recovered/Resolved]
  - Cardiogenic shock [Unknown]
  - Bacteraemia [Unknown]
  - Thrombocytopenia [Unknown]
  - Drug ineffective for unapproved indication [Unknown]
  - Drug effective for unapproved indication [Unknown]
  - Off label use [Unknown]
